FAERS Safety Report 25299194 (Version 2)
Quarter: 2025Q2

REPORT INFORMATION
  Report Type: Spontaneous
  Country: US (occurrence: US)
  Receive Date: 20250512
  Receipt Date: 20250522
  Transmission Date: 20250717
  Serious: No
  Sender: ROCHE
  Company Number: US-ROCHE-10000277763

PATIENT
  Age: 31 Year
  Sex: Male
  Weight: 81.65 kg

DRUGS (2)
  1. XOLAIR [Suspect]
     Active Substance: OMALIZUMAB
     Indication: Urticaria
     Dosage: ONGOING
     Route: 058
     Dates: start: 202401
  2. XOLAIR [Suspect]
     Active Substance: OMALIZUMAB
     Dosage: ONGOING
     Route: 058
     Dates: start: 202504

REACTIONS (2)
  - Intercepted product storage error [Unknown]
  - No adverse event [Unknown]

NARRATIVE: CASE EVENT DATE: 20250502
